FAERS Safety Report 5226292-7 (Version None)
Quarter: 2007Q1

REPORT INFORMATION
  Report Type: 
  Country: None (occurrence: None)
  Receive Date: 20070201
  Receipt Date: 20070118
  Transmission Date: 20070707
  Serious: Yes (Other)
  Sender: FDA-Public Use
  Company Number: PHEH2007US01072

PATIENT
  Age: 21 Year
  Sex: Female

DRUGS (1)
  1. GLEEVEC [Suspect]
     Indication: LEIOMYOMA
     Route: 048
     Dates: start: 20020101

REACTIONS (1)
  - LEIOMYOMA [None]
